FAERS Safety Report 9868085 (Version 1)
Quarter: 2014Q1

REPORT INFORMATION
  Report Type: Spontaneous
  Country: GB (occurrence: GB)
  Receive Date: 20140204
  Receipt Date: 20140204
  Transmission Date: 20141002
  Serious: Yes (Death, Other)
  Sender: FDA-Public Use
  Company Number: GB-TEVA-460459USA

PATIENT
  Sex: Male

DRUGS (1)
  1. LEVACT [Suspect]
     Route: 065

REACTIONS (1)
  - Death [Fatal]
